FAERS Safety Report 23289337 (Version 2)
Quarter: 2023Q4

REPORT INFORMATION
  Report Type: Spontaneous
  Country: CN (occurrence: CN)
  Receive Date: 20231212
  Receipt Date: 20231213
  Transmission Date: 20240109
  Serious: Yes (Other)
  Sender: FDA-Public Use
  Company Number: CN-009507513-2312CHN002440

PATIENT
  Age: 56 Year
  Sex: Male

DRUGS (2)
  1. INVANZ [Suspect]
     Active Substance: ERTAPENEM SODIUM
     Indication: Acute kidney injury
     Dosage: 1.0 G, QD
     Route: 041
     Dates: start: 20231115, end: 20231120
  2. SODIUM CHLORIDE [Concomitant]
     Active Substance: SODIUM CHLORIDE
     Indication: Medication dilution
     Dosage: 50 ML, QD
     Route: 041
     Dates: start: 20231115, end: 20231120

REACTIONS (4)
  - Dysarthria [Recovering/Resolving]
  - Renal failure [Unknown]
  - Tremor [Recovering/Resolving]
  - Hallucination [Recovering/Resolving]

NARRATIVE: CASE EVENT DATE: 20231101
